FAERS Safety Report 20680737 (Version 2)
Quarter: 2022Q2

REPORT INFORMATION
  Report Type: Spontaneous
  Country: FR (occurrence: FR)
  Receive Date: 20220406
  Receipt Date: 20220602
  Transmission Date: 20220720
  Serious: Yes (Other)
  Sender: FDA-Public Use
  Company Number: None

PATIENT
  Age: 60 Year
  Sex: Male
  Weight: 65 kg

DRUGS (11)
  1. ATRACURIUM BESYLATE [Suspect]
     Active Substance: ATRACURIUM BESYLATE
     Indication: General anaesthesia
     Dosage: 40 MG
     Route: 041
     Dates: start: 20220208, end: 20220208
  2. PROTAMINE [Suspect]
     Active Substance: PROTAMINE
     Indication: General anaesthesia
     Dosage: 25000 IU
     Route: 041
     Dates: start: 20220208, end: 20220208
  3. HEPARIN SODIUM [Suspect]
     Active Substance: HEPARIN SODIUM
     Indication: General anaesthesia
     Dosage: 20000 IU
     Route: 041
     Dates: start: 20220208, end: 20220208
  4. ATROPINE SULFATE [Suspect]
     Active Substance: ATROPINE SULFATE
     Indication: General anaesthesia
     Dosage: 1 MG
     Route: 041
     Dates: start: 20220208, end: 20220208
  5. MIDAZOLAM [Suspect]
     Active Substance: MIDAZOLAM
     Indication: General anaesthesia
     Dosage: 5 MG
     Route: 041
     Dates: start: 20220208, end: 20220208
  6. CEFUROXIME [Suspect]
     Active Substance: CEFUROXIME
     Indication: General anaesthesia
     Dosage: 3 G
     Route: 041
     Dates: start: 20220208, end: 20220208
  7. PROPOFOL [Suspect]
     Active Substance: PROPOFOL
     Indication: General anaesthesia
     Dosage: 11 UG
     Route: 041
     Dates: start: 20220208, end: 20220208
  8. SUFENTANIL [Suspect]
     Active Substance: SUFENTANIL
     Indication: General anaesthesia
     Dosage: 1.34 MG/ML
     Route: 041
     Dates: start: 20220208, end: 20220208
  9. TRANEXAMIC ACID [Suspect]
     Active Substance: TRANEXAMIC ACID
     Indication: General anaesthesia
     Dosage: 0.9 G
     Route: 041
     Dates: start: 20220208, end: 20220208
  10. NOREPINEPHRINE [Suspect]
     Active Substance: NOREPINEPHRINE
     Indication: General anaesthesia
     Dosage: 436.67 UG
     Route: 041
     Dates: start: 20220208, end: 20220208
  11. ETOMIDATE [Suspect]
     Active Substance: ETOMIDATE
     Indication: General anaesthesia
     Dosage: 10 MG
     Route: 041
     Dates: start: 20220208, end: 20220208

REACTIONS (2)
  - Cholestasis [Recovering/Resolving]
  - Transaminases increased [Recovering/Resolving]

NARRATIVE: CASE EVENT DATE: 20220208
